FAERS Safety Report 7739196-2 (Version None)
Quarter: 2011Q3

REPORT INFORMATION
  Report Type: 
  Country: None (occurrence: None)
  Receive Date: 20110909
  Receipt Date: 20110906
  Transmission Date: 20111222
  Serious: No
  Sender: FDA-Public Use
  Company Number: US-PFIZER INC-2011208602

PATIENT
  Sex: Female
  Weight: 51.7 kg

DRUGS (3)
  1. COREG [Concomitant]
     Indication: MITRAL VALVE PROLAPSE
     Dosage: UNK
  2. LYBREL [Suspect]
     Indication: OFF LABEL USE
     Dosage: 90 MCG/20 MCG, 1X/DAY
     Route: 048
     Dates: start: 20100201
  3. LYBREL [Suspect]
     Indication: HORMONE REPLACEMENT THERAPY

REACTIONS (1)
  - VAGINAL HAEMORRHAGE [None]
